FAERS Safety Report 10522069 (Version 2)
Quarter: 2014Q4

REPORT INFORMATION
  Report Type: Spontaneous
  Country: US (occurrence: US)
  Receive Date: 20141016
  Receipt Date: 20141119
  Transmission Date: 20150528
  Serious: No
  Sender: FDA-Public Use
  Company Number: US-PFIZER INC-2014280513

PATIENT
  Age: 56 Year
  Sex: Male
  Weight: 68.27 kg

DRUGS (4)
  1. PHENOBARBITAL. [Concomitant]
     Active Substance: PHENOBARBITAL
     Indication: SEIZURE
     Dosage: 64.8 MG, 2X/DAY
  2. PHENYTOIN. [Suspect]
     Active Substance: PHENYTOIN
     Indication: SEIZURE
     Dosage: 100 MG, 4X/DAY
  3. PHENYTOIN. [Suspect]
     Active Substance: PHENYTOIN
     Indication: BREAST CANCER MALE
  4. MELOXICAM. [Concomitant]
     Active Substance: MELOXICAM
     Indication: BURN OESOPHAGEAL
     Dosage: 15 MG, 1X/DAY

REACTIONS (1)
  - Drug ineffective [Unknown]

NARRATIVE: CASE EVENT DATE: 200907
